FAERS Safety Report 8210951-8 (Version None)
Quarter: 2012Q1

REPORT INFORMATION
  Report Type: 
  Country: None (occurrence: None)
  Receive Date: 20120315
  Receipt Date: 20120309
  Transmission Date: 20120608
  Serious: Yes (Death, Hospitalization)
  Sender: FDA-Public Use
  Company Number: US-CELGENEUS-163-21880-12022458

PATIENT
  Sex: Female

DRUGS (31)
  1. VIDAZA [Suspect]
     Indication: ACUTE MYELOID LEUKAEMIA
     Dosage: 101 MILLIGRAM
     Route: 058
     Dates: start: 20110422, end: 20110428
  2. CALCIUM CARBONATE [Concomitant]
     Route: 065
  3. HYDROCORTISONE [Concomitant]
     Route: 065
  4. NICARDIPINE HCL [Concomitant]
     Indication: BLOOD PRESSURE
     Route: 065
  5. DILANTIN [Concomitant]
     Dosage: 750
     Route: 065
  6. VITAMIN D [Concomitant]
     Indication: NAUSEA
     Dosage: 1200 MILLIGRAM
     Route: 048
  7. MULTI-VITAMINS [Concomitant]
     Route: 065
  8. DECADRON [Concomitant]
     Dosage: 10 MILLIGRAM
     Route: 065
  9. REVLIMID [Suspect]
     Dosage: 50 MILLIGRAM
     Route: 048
     Dates: start: 20120120, end: 20120127
  10. VIDAZA [Suspect]
     Dosage: 101 MILLIGRAM
     Route: 058
     Dates: start: 20120113, end: 20120119
  11. CIPRO [Concomitant]
     Route: 041
  12. LEVOTHYROXINE SODIUM [Concomitant]
     Route: 065
  13. REVLIMID [Suspect]
     Indication: ACUTE MYELOID LEUKAEMIA
     Dosage: 50 MILLIGRAM
     Route: 048
     Dates: start: 20110402, end: 20110519
  14. ENALAPRIL MALEATE [Concomitant]
     Route: 065
  15. ARMODAFINIL [Concomitant]
     Dosage: 400 MILLIGRAM
     Route: 041
  16. PLATELETS [Concomitant]
     Route: 041
     Dates: start: 20120101
  17. SYNTHROID [Concomitant]
     Dosage: 75 MICROGRAM
     Route: 065
  18. ZOSYN [Concomitant]
     Route: 041
  19. CLONIDINE [Concomitant]
     Route: 065
  20. FLAGYL [Concomitant]
     Dosage: 500 MILLIGRAM
     Route: 048
  21. PLATELETS [Concomitant]
     Indication: PLATELET COUNT
     Route: 041
  22. IBUPROFEN [Concomitant]
     Dosage: 200 MILLIGRAM
     Route: 065
  23. BENADRYL [Concomitant]
     Route: 065
  24. PHENYTOIN [Concomitant]
     Indication: PROPHYLAXIS
     Route: 065
  25. MULTI-VITAMIN [Concomitant]
     Dosage: 1 TABLET
     Route: 048
  26. ZOFRAN [Concomitant]
     Indication: NAUSEA
     Dosage: 4 MILLIGRAM
     Route: 048
  27. MORPHINE [Concomitant]
     Route: 065
  28. ACETAMINOPHEN [Concomitant]
     Route: 065
  29. CALCIUM CARBONATE [Concomitant]
     Route: 065
  30. SOLU-CORTEF [Concomitant]
     Route: 065
  31. ANCEF [Concomitant]
     Dosage: 1.5 GRAM
     Route: 065

REACTIONS (2)
  - GLIOBLASTOMA [None]
  - CARDIO-RESPIRATORY ARREST [None]
